FAERS Safety Report 9178691 (Version 1)
Quarter: 2012Q4

REPORT INFORMATION
  Report Type: 
  Country: US (occurrence: US)
  Receive Date: 20121029
  Receipt Date: 20121029
  Transmission Date: 20130627
  Serious: No
  Sender: FDA-Public Use
  Company Number: US-PFIZER INC-2012269208

PATIENT
  Age: 60 Year
  Sex: Female
  Weight: 40.82 kg

DRUGS (3)
  1. CHANTIX [Suspect]
     Indication: SMOKING CESSATION THERAPY
     Dosage: 0.5 mg, Daily
     Dates: start: 201210, end: 201210
  2. CHANTIX [Suspect]
     Dosage: 1 mg, 2x/day
     Dates: start: 201210
  3. ATENOLOL [Concomitant]
     Indication: HYPERTENSION
     Dosage: 50 mg, daily

REACTIONS (2)
  - Nausea [Not Recovered/Not Resolved]
  - Vomiting [Not Recovered/Not Resolved]
